FAERS Safety Report 7730066-2 (Version None)
Quarter: 2011Q3

REPORT INFORMATION
  Report Type: 
  Country: None (occurrence: None)
  Receive Date: 20110906
  Receipt Date: 20110826
  Transmission Date: 20111222
  Serious: Yes (Hospitalization)
  Sender: FDA-Public Use
  Company Number: PHHY2011CH76684

PATIENT
  Age: 35 Year
  Sex: Female

DRUGS (6)
  1. CLOZAPINE [Suspect]
     Dosage: 100 MG, DAILY
     Route: 048
     Dates: start: 20110524
  2. CLOZAPINE [Suspect]
     Dosage: 25 MG
     Route: 048
     Dates: start: 20110518
  3. CLOZAPINE [Suspect]
     Dosage: 200 MG, DAILY
     Route: 048
     Dates: start: 20110523
  4. CLOZAPINE [Suspect]
     Dosage: 50 MG
     Route: 048
     Dates: start: 20110519
  5. CLOZAPINE [Suspect]
     Dosage: 100 MG, DAILY
     Route: 048
     Dates: start: 20110520
  6. CLOZAPINE [Suspect]
     Dosage: 300 MG DAILY
     Route: 048
     Dates: start: 20110531, end: 20110619

REACTIONS (2)
  - PSYCHIATRIC DECOMPENSATION [None]
  - GRAND MAL CONVULSION [None]
